FAERS Safety Report 7636742-4 (Version None)
Quarter: 2011Q3

REPORT INFORMATION
  Report Type: 
  Country: None (occurrence: None)
  Receive Date: 20110722
  Receipt Date: 20110722
  Transmission Date: 20111222
  Serious: Yes (Other)
  Sender: FDA-Public Use
  Company Number: None

PATIENT
  Age: 34 Year
  Sex: Female
  Weight: 101.4 kg

DRUGS (1)
  1. VALSARTAN [Suspect]
     Indication: MIGRAINE
     Dosage: VALSARTAN 8MG 1 QD

REACTIONS (2)
  - HEADACHE [None]
  - NAUSEA [None]
